FAERS Safety Report 6578465-9 (Version None)
Quarter: 2010Q1

REPORT INFORMATION
  Report Type: 
  Country: None (occurrence: None)
  Receive Date: 20100211
  Receipt Date: 20100129
  Transmission Date: 20100710
  Serious: Yes (Hospitalization)
  Sender: FDA-Public Use
  Company Number: FR-JNJFOC-20100204626

PATIENT
  Sex: Male

DRUGS (13)
  1. IXPRIM [Suspect]
     Indication: PAIN
     Route: 048
  2. MS CONTIN [Suspect]
     Indication: PAIN
     Dosage: SINGLE DOSE
     Route: 048
  3. ACTISKENAN [Suspect]
     Indication: PAIN
     Route: 065
  4. DAFALGAN [Concomitant]
     Indication: PAIN
     Dosage: IN 4 INTAKES
  5. BRONCHODUAL [Concomitant]
  6. TRIFLUCAN [Concomitant]
  7. KAYEXALATE [Concomitant]
  8. KARDEGIC [Concomitant]
  9. LYRICA [Concomitant]
  10. TRIATEC [Concomitant]
  11. XATRAL [Concomitant]
  12. NEORECORMON [Concomitant]
  13. SODIUM BICARBONATE [Concomitant]

REACTIONS (1)
  - COMA [None]
